FAERS Safety Report 10203978 (Version 1)
Quarter: 2014Q2

REPORT INFORMATION
  Report Type: Spontaneous
  Country: JP (occurrence: JP)
  Receive Date: 20140529
  Receipt Date: 20140529
  Transmission Date: 20141212
  Serious: Yes (Other)
  Sender: FDA-Public Use
  Company Number: JP-SA-2014SA066428

PATIENT
  Sex: Female

DRUGS (2)
  1. DELLEGRA [Suspect]
     Indication: PRODUCT USED FOR UNKNOWN INDICATION
     Dosage: TID 30 MINUTES BEFORE EVERY MEAL
     Route: 048
  2. ANTIBIOTICS [Suspect]
     Indication: NASOPHARYNGITIS
     Route: 048

REACTIONS (6)
  - Abasia [Unknown]
  - Chest pain [Unknown]
  - Pyrexia [Unknown]
  - Hypoaesthesia [Unknown]
  - Nasopharyngitis [Unknown]
  - Overdose [Unknown]
